FAERS Safety Report 14670891 (Version 1)
Quarter: 2018Q1

REPORT INFORMATION
  Report Type: Spontaneous
  Country: US (occurrence: US)
  Receive Date: 20180321
  Receipt Date: 20180321
  Transmission Date: 20180509
  Serious: Yes (Hospitalization)
  Sender: FDA-Public Use
  Company Number: None

PATIENT
  Age: 55 Year
  Sex: Male

DRUGS (12)
  1. ZOFRAN 8MG PRN [Concomitant]
  2. ADDERALL 20MG BID [Concomitant]
  3. ATIVAN 0.5MG Q6HPM [Concomitant]
  4. DIFLUCAN 100MG QD [Concomitant]
  5. XARELTO 15MG QD [Concomitant]
  6. CAPECITABINE 500MG [Suspect]
     Active Substance: CAPECITABINE
     Indication: PANCREATIC CARCINOMA
     Route: 048
     Dates: start: 20180305, end: 20180307
  7. AKYNZEO 300MG BID [Concomitant]
  8. B12 INJ EVERY 2 WEEKS [Concomitant]
  9. REGLAN 10MG PRN [Concomitant]
  10. SANCUSO 3.1MG TD [Concomitant]
  11. FA 1MG QD [Concomitant]
  12. SYNTHROID 125MCG QD [Concomitant]

REACTIONS (2)
  - Fatigue [None]
  - Diarrhoea [None]

NARRATIVE: CASE EVENT DATE: 20180308
